FAERS Safety Report 7012633-7 (Version None)
Quarter: 2010Q3

REPORT INFORMATION
  Report Type: 
  Country: None (occurrence: None)
  Receive Date: 20100924
  Receipt Date: 20100915
  Transmission Date: 20110219
  Serious: Yes (Hospitalization, Other)
  Sender: FDA-Public Use
  Company Number: US-NAPPMUNDI-GBR-2010-0007075

PATIENT
  Age: 67 Year
  Sex: Male

DRUGS (3)
  1. HYDROMORPHONE HCL [Suspect]
     Indication: PAIN
     Route: 037
  2. BUPIVACAINE HCL [Suspect]
     Indication: PAIN
  3. PHENOL [Suspect]
     Indication: PAIN
     Dosage: 5 %, UNK

REACTIONS (1)
  - PAIN [None]
